FAERS Safety Report 10490325 (Version 5)
Quarter: 2015Q1

REPORT INFORMATION
  Report Type: Report from Study
  Country: GB (occurrence: GB)
  Receive Date: 20141002
  Receipt Date: 20150302
  Transmission Date: 20150720
  Serious: Yes (Hospitalization)
  Sender: FDA-Public Use
  Company Number: GB-CELGENE-167-50794-14084587

PATIENT
  Age: 25 Year
  Sex: Male
  Weight: 64.3 kg

DRUGS (10)
  1. HYDROXYUREA. [Concomitant]
     Active Substance: HYDROXYUREA
     Indication: WHITE BLOOD CELL COUNT INCREASED
     Dosage: 3 GRAM
     Route: 065
     Dates: start: 20140903, end: 20140916
  2. DEXAMETHASONE. [Concomitant]
     Active Substance: DEXAMETHASONE
     Indication: STEROID THERAPY
     Route: 065
     Dates: start: 20140918
  3. AZACITIDINE. [Suspect]
     Active Substance: AZACITIDINE
     Route: 058
     Dates: start: 20140828
  4. ALLOPURINOL. [Concomitant]
     Active Substance: ALLOPURINOL
     Indication: BLOOD URIC ACID ABNORMAL
     Route: 065
     Dates: start: 20140918
  5. HYDROXYUREA. [Concomitant]
     Active Substance: HYDROXYUREA
     Route: 065
     Dates: start: 20140921, end: 20140926
  6. LINEZOLID. [Concomitant]
     Active Substance: LINEZOLID
     Indication: ANTIBIOTIC THERAPY
     Route: 065
     Dates: start: 20140923
  7. AZACITIDINE. [Suspect]
     Active Substance: AZACITIDINE
     Indication: ACUTE MYELOID LEUKAEMIA
     Route: 058
     Dates: start: 20140819, end: 20140828
  8. REVLIMID [Suspect]
     Active Substance: LENALIDOMIDE
     Indication: ACUTE MYELOID LEUKAEMIA
     Dosage: 5 MILLIGRAM
     Route: 048
     Dates: start: 20140829, end: 20140918
  9. HYDROXYUREA. [Concomitant]
     Active Substance: HYDROXYUREA
     Route: 065
     Dates: start: 20140916, end: 20140920
  10. POSACONAZOLE [Concomitant]
     Active Substance: POSACONAZOLE
     Indication: ANTIFUNGAL TREATMENT
     Route: 065
     Dates: start: 20140919

REACTIONS (6)
  - Pyrexia [Recovered/Resolved]
  - Sepsis [Not Recovered/Not Resolved]
  - Fatigue [Recovered/Resolved]
  - Pyrexia [Not Recovered/Not Resolved]
  - Bone pain [Recovered/Resolved]
  - Sinus tachycardia [Recovered/Resolved]

NARRATIVE: CASE EVENT DATE: 20140819
